FAERS Safety Report 6291514-0 (Version None)
Quarter: 2009Q3

REPORT INFORMATION
  Report Type: 
  Country: None (occurrence: None)
  Receive Date: 20090730
  Receipt Date: 20090724
  Transmission Date: 20100115
  Serious: Yes (Life-Threatening, Hospitalization)
  Sender: FDA-Public Use
  Company Number: DE-SANOFI-SYNTHELABO-A04200900864

PATIENT
  Sex: Female
  Weight: 62 kg

DRUGS (1)
  1. QUENSYL [Suspect]
     Indication: LICHEN PLANUS
     Route: 048
     Dates: start: 20051101

REACTIONS (4)
  - CIRCULATORY COLLAPSE [None]
  - DISTURBANCE IN ATTENTION [None]
  - HYPOKALAEMIA [None]
  - HYPONATRAEMIA [None]
